FAERS Safety Report 25215521 (Version 1)
Quarter: 2025Q2

REPORT INFORMATION
  Report Type: Spontaneous
  Country: US (occurrence: US)
  Receive Date: 20250418
  Receipt Date: 20250418
  Transmission Date: 20250717
  Serious: No
  Sender: Phathom Pharmaceuticals
  Company Number: US-PHATHOM PHARMACEUTICALS INC.-2025PHT00039

PATIENT
  Age: 70 Year
  Sex: Female
  Weight: 92.063 kg

DRUGS (8)
  1. VOQUEZNA [Suspect]
     Active Substance: VONOPRAZAN FUMARATE
     Indication: Reflux laryngitis
     Dosage: 20 MG, 1X/DAY
     Route: 048
     Dates: start: 2024
  2. SYNTHROID [Concomitant]
     Active Substance: LEVOTHYROXINE SODIUM
  3. LISINOPRIL [Concomitant]
     Active Substance: LISINOPRIL
  4. WELLBUTRIN [Concomitant]
     Active Substance: BUPROPION HYDROCHLORIDE
  5. GEODON [Concomitant]
     Active Substance: ZIPRASIDONE HYDROCHLORIDE\ZIPRASIDONE MESYLATE
  6. OXYCODONE [Concomitant]
     Active Substance: OXYCODONE
  7. SEROQUEL [Concomitant]
     Active Substance: QUETIAPINE FUMARATE
  8. CEVIMELINE [Concomitant]
     Active Substance: CEVIMELINE

REACTIONS (1)
  - Knee operation [Recovered/Resolved]

NARRATIVE: CASE EVENT DATE: 20241025
